FAERS Safety Report 5417060-1 (Version None)
Quarter: 2007Q3

REPORT INFORMATION
  Report Type: 
  Country: None (occurrence: None)
  Receive Date: 20070816
  Receipt Date: 20070509
  Transmission Date: 20080115
  Serious: No
  Sender: FDA-Public Use
  Company Number: US-BRISTOL-MYERS SQUIBB COMPANY-13775077

PATIENT
  Sex: Male

DRUGS (2)
  1. ZERIT [Suspect]
     Route: 048
  2. SUSTIVA [Suspect]
     Route: 048

REACTIONS (2)
  - T-LYMPHOCYTE COUNT DECREASED [None]
  - VIRAL LOAD INCREASED [None]
